FAERS Safety Report 12448027 (Version 2)
Quarter: 2016Q3

REPORT INFORMATION
  Report Type: Report from Study
  Country: PL (occurrence: PL)
  Receive Date: 20160608
  Receipt Date: 20160720
  Transmission Date: 20161109
  Serious: Yes (Hospitalization, Other)
  Sender: FDA-Public Use
  Company Number: PL-ASTELLAS-2016US002898

PATIENT
  Age: 7 Year
  Sex: Male
  Weight: 42 kg

DRUGS (2)
  1. TACROLIMUS. [Suspect]
     Active Substance: TACROLIMUS
     Dosage: 0.03 % ONCE A DAY TWICE WEEKLY
     Route: 061
     Dates: start: 20120517
  2. TACROLIMUS. [Suspect]
     Active Substance: TACROLIMUS
     Indication: DERMATITIS ATOPIC
     Dosage: 0.03 %, ONCE WEEKLY
     Route: 061
     Dates: start: 20120124

REACTIONS (3)
  - Asthma [Recovered/Resolved]
  - Obesity [Recovered/Resolved]
  - Dermatitis atopic [Recovered/Resolved]

NARRATIVE: CASE EVENT DATE: 20150809
